FAERS Safety Report 7164256-7 (Version None)
Quarter: 2010Q4

REPORT INFORMATION
  Report Type: 
  Country: None (occurrence: None)
  Receive Date: 20101215
  Receipt Date: 20101214
  Transmission Date: 20110411
  Serious: Yes (Death)
  Sender: FDA-Public Use
  Company Number: FR-BRISTOL-MYERS SQUIBB COMPANY-15372196

PATIENT
  Age: 44 Year
  Sex: Female

DRUGS (3)
  1. ABILIFY [Suspect]
     Indication: SCHIZOPHRENIA
     Dosage: DECREASED FROM 30 MG TO 20 AND THEN 15 MG IN MAY 2009 15MG-14APR2008
     Route: 048
     Dates: start: 20070101
  2. LEPTICUR [Concomitant]
     Dosage: LEPTICUR 5 MG TABS
     Route: 048
     Dates: end: 20060101
  3. SERESTA [Concomitant]
     Dosage: SERESTA 10 MG TABS
     Route: 048
     Dates: end: 20060101

REACTIONS (1)
  - DEATH [None]
